FAERS Safety Report 18005201 (Version 1)
Quarter: 2020Q3

REPORT INFORMATION
  Report Type: Spontaneous
  Country: US (occurrence: US)
  Receive Date: 20200709
  Receipt Date: 20200709
  Transmission Date: 20201103
  Serious: No
  Sender: FDA-Public Use
  Company Number: None

PATIENT

DRUGS (2)
  1. GLIPIZIDE ER [Suspect]
     Active Substance: GLIPIZIDE
  2. GLIPIZIDE IR [Suspect]
     Active Substance: GLIPIZIDE

REACTIONS (2)
  - Intercepted product dispensing error [None]
  - Product dispensing error [None]
